FAERS Safety Report 22526540 (Version 2)
Quarter: 2023Q2

REPORT INFORMATION
  Report Type: Spontaneous
  Country: TW (occurrence: TW)
  Receive Date: 20230606
  Receipt Date: 20230610
  Transmission Date: 20230721
  Serious: Yes (Death)
  Sender: FDA-Public Use
  Company Number: TW-DSJP-DSJ-2023-115994

PATIENT
  Age: 63 Year
  Sex: Female

DRUGS (2)
  1. TRASTUZUMAB DERUXTECAN [Suspect]
     Active Substance: TRASTUZUMAB DERUXTECAN
     Indication: Breast cancer
     Dosage: 5.4 MG, ONCE EVERY 3 WK (100 MG/VIAL)
     Route: 041
  2. TRASTUZUMAB DERUXTECAN [Suspect]
     Active Substance: TRASTUZUMAB DERUXTECAN
     Indication: HER2 positive breast cancer
     Dosage: 3.4 MG/KG, (~200MG) ONCE EVERY 3 WK (100 MG/VIAL)
     Route: 041
     Dates: end: 20230411

REACTIONS (2)
  - Pneumocystis jirovecii pneumonia [Fatal]
  - Pneumonitis [Fatal]

NARRATIVE: CASE EVENT DATE: 20230411
